FAERS Safety Report 9052064 (Version 1)
Quarter: 2013Q1

REPORT INFORMATION
  Report Type: Spontaneous
  Country: US (occurrence: US)
  Receive Date: 20130207
  Receipt Date: 20130207
  Transmission Date: 20140127
  Serious: No
  Sender: FDA-Public Use
  Company Number: US-BAYER-2013-014045

PATIENT
  Sex: Female

DRUGS (4)
  1. YAZ [Suspect]
  2. IBUPROFEN [IBUPROFEN] [Suspect]
  3. SIMVASTATIN [Concomitant]
     Dosage: UNK
  4. EFFEXOR [Concomitant]
     Dosage: UNK

REACTIONS (2)
  - Menstruation delayed [None]
  - Labelled drug-drug interaction medication error [None]
